FAERS Safety Report 5093841-1 (Version None)
Quarter: 2006Q3

REPORT INFORMATION
  Report Type: 
  Country: None (occurrence: None)
  Receive Date: 20060829
  Receipt Date: 20060829
  Transmission Date: 20061208
  Serious: Yes (Other)
  Sender: FDA-Public Use
  Company Number: None

PATIENT
  Age: 59 Year
  Sex: Male
  Weight: 100.2 kg

DRUGS (3)
  1. SIMVASTATIN [Suspect]
  2. METFORMIN HYDROCHLORIDE [Concomitant]
  3. ROSIGLITAZONE MALEATE [Concomitant]

REACTIONS (2)
  - MUSCULAR WEAKNESS [None]
  - MYALGIA [None]
